FAERS Safety Report 10529826 (Version 1)
Quarter: 2014Q4

REPORT INFORMATION
  Report Type: Spontaneous
  Country: US (occurrence: None)
  Receive Date: 20141017
  Receipt Date: 20141017
  Transmission Date: 20150528
  Serious: Yes (Other)
  Sender: FDA-Public Use
  Company Number: 2014SCAL000168

PATIENT
  Age: 10 Year
  Sex: Male

DRUGS (1)
  1. LITHIUM CARBONATE (LITHIUM CARBONATE) UNKNOWN [Suspect]
     Active Substance: LITHIUM CARBONATE
     Indication: BIPOLAR DISORDER

REACTIONS (4)
  - Suicidal ideation [None]
  - Aggression [None]
  - Condition aggravated [None]
  - Dysphemia [None]
